FAERS Safety Report 16712658 (Version 1)
Quarter: 2019Q3

REPORT INFORMATION
  Report Type: Spontaneous
  Country: UA (occurrence: UA)
  Receive Date: 20190816
  Receipt Date: 20190816
  Transmission Date: 20191004
  Serious: Yes (Hospitalization)
  Sender: FDA-Public Use
  Company Number: PHHY2019UA183618

PATIENT
  Sex: Male

DRUGS (8)
  1. CALCIUM FOLINATE [Suspect]
     Active Substance: LEUCOVORIN CALCIUM
     Indication: ADENOCARCINOMA PANCREAS
     Dosage: UNK
     Route: 042
  2. CALCIUM FOLINATE [Suspect]
     Active Substance: LEUCOVORIN CALCIUM
     Dosage: UNK
     Route: 013
  3. OXALIPLATIN. [Suspect]
     Active Substance: OXALIPLATIN
     Dosage: UNK
     Route: 013
  4. 5-FLUOROURACIL [Suspect]
     Active Substance: FLUOROURACIL
     Dosage: UNK
     Route: 013
  5. IRINOTECAN [Suspect]
     Active Substance: IRINOTECAN
     Dosage: UNK
     Route: 013
  6. OXALIPLATIN. [Suspect]
     Active Substance: OXALIPLATIN
     Indication: ADENOCARCINOMA PANCREAS
     Dosage: UNK
     Route: 042
  7. 5-FLUOROURACIL [Suspect]
     Active Substance: FLUOROURACIL
     Indication: ADENOCARCINOMA PANCREAS
     Dosage: UNK
     Route: 042
  8. IRINOTECAN [Suspect]
     Active Substance: IRINOTECAN
     Indication: ADENOCARCINOMA PANCREAS
     Dosage: UNK
     Route: 042

REACTIONS (8)
  - Weight decreased [Unknown]
  - Nausea [Recovering/Resolving]
  - Asthenia [Recovering/Resolving]
  - Abdominal pain upper [Unknown]
  - Pancytopenia [Recovered/Resolved]
  - Poisoning [Recovering/Resolving]
  - Decreased appetite [Recovered/Resolved]
  - Product use in unapproved indication [Unknown]
